FAERS Safety Report 9420285 (Version 4)
Quarter: 2013Q3

REPORT INFORMATION
  Report Type: Spontaneous
  Country: IE (occurrence: IE)
  Receive Date: 20130725
  Receipt Date: 20130903
  Transmission Date: 20140515
  Serious: Yes (Congenital Anomaly)
  Sender: FDA-Public Use
  Company Number: IE-BAYER-2013-089034

PATIENT
  Sex: Female

DRUGS (2)
  1. LEVONELLE [Suspect]
     Dosage: 1.5 MG, ONCE
     Route: 064
  2. YAZ [Suspect]
     Route: 064

REACTIONS (3)
  - Syndactyly [None]
  - Underweight [None]
  - Foetal exposure timing unspecified [None]
